FAERS Safety Report 8563854 (Version 2)
Quarter: 2012Q4

REPORT INFORMATION
  Report Type: 
  Country: US (occurrence: US)
  Receive Date: 20120515
  Receipt Date: 20120911
  Transmission Date: 20130627
  Serious: Yes (Hospitalization)
  Sender: FDA-Public Use
  Company Number: US-RB-040206-12

PATIENT
  Age: 39 Year
  Sex: Male

DRUGS (12)
  1. SUBOXONE TABLETS [Suspect]
     Indication: DRUG DEPENDENCE
     Route: 060
     Dates: start: 2011, end: 2011
  2. SUBOXONE TABLETS [Suspect]
     Route: 060
     Dates: start: 2011, end: 201111
  3. SUBOXONE TABLETS [Suspect]
     Route: 060
     Dates: start: 201111, end: 201202
  4. ALCOHOL [Suspect]
     Indication: ALCOHOLISM
     Dosage: Dosing details unknown
     Route: 048
     Dates: end: 201204
  5. ALCOHOL [Suspect]
     Indication: DRUG WITHDRAWAL SYNDROME
     Dosage: Dosing details unknown
     Route: 048
     Dates: end: 201204
  6. CIGARETTES [Suspect]
     Indication: NICOTINE DEPENDENCE
     Dosage: More than 40 a day
  7. CYMBALTA [Concomitant]
     Indication: DEPRESSION
     Dosage: Dosing details unknown
     Route: 065
  8. CYMBALTA [Concomitant]
     Indication: DEPRESSION
     Dosage: Dosing details unknown
     Route: 065
  9. MELATONIN [Concomitant]
     Indication: SLEEP DISORDER
     Dosage: Dosing details unknown
     Route: 065
  10. B-6 [Concomitant]
     Indication: SUPPLEMENTATION THERAPY
     Dosage: Dosing details unknown
     Route: 065
  11. B-12 [Concomitant]
     Indication: SUPPLEMENTATION THERAPY
     Dosage: Dosing details unknown
     Route: 065
  12. SUBOXONE FILM [Concomitant]
     Indication: DRUG DEPENDENCE
     Dosage: Suboxone film
     Route: 060
     Dates: start: 201111, end: 201111

REACTIONS (3)
  - Type 2 diabetes mellitus [Not Recovered/Not Resolved]
  - Drug withdrawal syndrome [Recovered/Resolved]
  - Alcohol abuse [Recovered/Resolved]
